FAERS Safety Report 9449971 (Version 1)
Quarter: 2013Q3

REPORT INFORMATION
  Report Type: Spontaneous
  Country: US (occurrence: US)
  Receive Date: 20130809
  Receipt Date: 20130809
  Transmission Date: 20140515
  Serious: No
  Sender: FDA-Public Use
  Company Number: US-009507513-1308USA003987

PATIENT
  Sex: Female
  Weight: 61.22 kg

DRUGS (7)
  1. VICTRELIS [Suspect]
     Indication: HEPATITIS C
     Dosage: TAKE 4 CAPSULES BY MOUTH THREE TIMES A DAY
     Route: 048
  2. REBETOL [Suspect]
  3. PEGASYS [Suspect]
     Dosage: 180 MCG/M
  4. NEURONTIN [Concomitant]
  5. ZANTAC [Concomitant]
     Dosage: 75
  6. IBUPROFEN [Concomitant]
  7. ZOFRAN [Concomitant]

REACTIONS (4)
  - Skin mass [Unknown]
  - Stomatitis [Unknown]
  - Pruritus [Unknown]
  - Dysgeusia [Unknown]
